FAERS Safety Report 17872046 (Version 1)
Quarter: 2020Q2

REPORT INFORMATION
  Report Type: Spontaneous
  Country: US (occurrence: US)
  Receive Date: 20200608
  Receipt Date: 20200608
  Transmission Date: 20200714
  Serious: No
  Sender: FDA-Public Use
  Company Number: US-JNJFOC-20200523562

PATIENT
  Age: 43 Year
  Sex: Male
  Weight: 99.88 kg

DRUGS (1)
  1. MENS ROGAINE EXTRA STRENGTH [Suspect]
     Active Substance: MINOXIDIL
     Indication: ALOPECIA
     Dosage: HALF CAPFUL?PRODUCT WAS LAST ADMINISTERED ON 18-MAY-2020
     Route: 061
     Dates: start: 202004

REACTIONS (1)
  - Application site paraesthesia [Recovered/Resolved]

NARRATIVE: CASE EVENT DATE: 202004
